FAERS Safety Report 6781628-0 (Version None)
Quarter: 2010Q2

REPORT INFORMATION
  Report Type: 
  Country: None (occurrence: None)
  Receive Date: 20100621
  Receipt Date: 20100610
  Transmission Date: 20101027
  Serious: Yes (Other)
  Sender: FDA-Public Use
  Company Number: US-BAYER-201025297NA

PATIENT
  Age: 55 Year
  Sex: Female

DRUGS (1)
  1. MAGNEVIST [Suspect]
     Indication: NUCLEAR MAGNETIC RESONANCE IMAGING THORACIC
     Dates: start: 20100605, end: 20100605

REACTIONS (5)
  - APHAGIA [None]
  - LIP SWELLING [None]
  - PRURITUS [None]
  - SWOLLEN TONGUE [None]
  - URTICARIA [None]
